FAERS Safety Report 5586281-X (Version None)
Quarter: 2008Q1

REPORT INFORMATION
  Report Type: 
  Country: None (occurrence: None)
  Receive Date: 20080108
  Receipt Date: 20080108
  Transmission Date: 20080703
  Serious: No
  Sender: FDA-Public Use
  Company Number: None

PATIENT
  Sex: Female

DRUGS (1)
  1. METOPROLOL SUCCINATE EXTENDED RELEASE [Suspect]
     Indication: HYPERTENSION
     Dosage: 100MG DAILY PO
     Route: 048
     Dates: start: 20060801, end: 20061001

REACTIONS (2)
  - NAUSEA [None]
  - PALPITATIONS [None]
